FAERS Safety Report 4438375-X (Version None)
Quarter: 2004Q3

REPORT INFORMATION
  Report Type: 
  Country: None (occurrence: None)
  Receive Date: 20040831
  Receipt Date: 20040729
  Transmission Date: 20050211
  Serious: No
  Sender: FDA-Public Use
  Company Number: US-GLAXOSMITHKLINE-A0520286A

PATIENT

DRUGS (2)
  1. WELLBUTRIN XL [Suspect]
     Route: 048
  2. TOPROL-XL [Concomitant]

REACTIONS (2)
  - DIZZINESS [None]
  - ILL-DEFINED DISORDER [None]
